FAERS Safety Report 9748696 (Version 2)
Quarter: 2013Q4

REPORT INFORMATION
  Report Type: Spontaneous
  Country: US (occurrence: US)
  Receive Date: 20131212
  Receipt Date: 20131227
  Transmission Date: 20140711
  Serious: No
  Sender: FDA-Public Use
  Company Number: US-BAYER-2013-149928

PATIENT
  Sex: 0

DRUGS (1)
  1. AVELOX [Suspect]
     Dosage: UNK

REACTIONS (7)
  - Tendon pain [None]
  - Nausea [None]
  - Headache [None]
  - Dizziness [None]
  - Feeling abnormal [None]
  - Fatigue [None]
  - Asthenia [None]
